FAERS Safety Report 20129853 (Version 1)
Quarter: 2021Q4

REPORT INFORMATION
  Report Type: Spontaneous
  Country: GB (occurrence: GB)
  Receive Date: 20211130
  Receipt Date: 20211130
  Transmission Date: 20220304
  Serious: Yes (Death)
  Sender: FDA-Public Use
  Company Number: None

PATIENT
  Age: 87 Year
  Sex: Male

DRUGS (3)
  1. CIPROFLOXACIN [Suspect]
     Active Substance: CIPROFLOXACIN
     Indication: Prostate cancer
     Dosage: 250 MG
     Route: 048
     Dates: start: 19920707
  2. ASPIRIN [Concomitant]
     Active Substance: ASPIRIN
  3. OMEPRAZOLE [Concomitant]
     Active Substance: OMEPRAZOLE

REACTIONS (8)
  - Tendonitis [Fatal]
  - Metastatic neoplasm [Fatal]
  - Epididymitis [Fatal]
  - Somnolence [Fatal]
  - Testicular pain [Fatal]
  - Pain in extremity [Fatal]
  - Muscular weakness [Fatal]
  - Mobility decreased [Fatal]

NARRATIVE: CASE EVENT DATE: 20190909
